FAERS Safety Report 5867438-7 (Version None)
Quarter: 2008Q3

REPORT INFORMATION
  Report Type: 
  Country: None (occurrence: None)
  Receive Date: 20080902
  Receipt Date: 20080902
  Transmission Date: 20090109
  Serious: Yes (Other)
  Sender: FDA-Public Use
  Company Number: PHEH1999US02678

PATIENT
  Sex: Male
  Weight: 80 kg

DRUGS (1)
  1. SANDIMMUNE [Suspect]
     Route: 048
     Dates: start: 19951125

REACTIONS (1)
  - SQUAMOUS CELL CARCINOMA [None]
